FAERS Safety Report 11375286 (Version 1)
Quarter: 2015Q3

REPORT INFORMATION
  Report Type: Spontaneous
  Country: FR (occurrence: FR)
  Receive Date: 20150813
  Receipt Date: 20150813
  Transmission Date: 20151125
  Serious: Yes (Death)
  Sender: FDA-Public Use
  Company Number: PHHY2015FR097573

PATIENT
  Age: 81 Year
  Sex: Male

DRUGS (1)
  1. VOLTARENE [Suspect]
     Active Substance: DICLOFENAC SODIUM
     Indication: SPINAL PAIN
     Route: 048

REACTIONS (2)
  - Melaena [Fatal]
  - Asthenia [Fatal]

NARRATIVE: CASE EVENT DATE: 201405
